FAERS Safety Report 10818054 (Version 4)
Quarter: 2019Q4

REPORT INFORMATION
  Report Type: Report from Study
  Country: US (occurrence: US)
  Receive Date: 20150218
  Receipt Date: 20191203
  Transmission Date: 20200122
  Serious: Yes (Other)
  Sender: FDA-Public Use
  Company Number: US-TEVA-540929USA

PATIENT
  Age: 25 Year
  Sex: Female

DRUGS (2)
  1. CLARAVIS [Suspect]
     Active Substance: ISOTRETINOIN
     Dosage: 60 MILLIGRAM DAILY;
     Route: 048
     Dates: start: 2013, end: 20150204
  2. CLARAVIS [Suspect]
     Active Substance: ISOTRETINOIN
     Dates: start: 201306

REACTIONS (2)
  - Unintended pregnancy [Recovered/Resolved]
  - Maternal exposure during pregnancy [Unknown]

NARRATIVE: CASE EVENT DATE: 20150211
